FAERS Safety Report 11540288 (Version 4)
Quarter: 2015Q4

REPORT INFORMATION
  Report Type: Spontaneous
  Country: US (occurrence: US)
  Receive Date: 20150923
  Receipt Date: 20151007
  Transmission Date: 20160304
  Serious: No
  Sender: FDA-Public Use
  Company Number: US-009507513-1509USA007896

PATIENT
  Sex: Female

DRUGS (5)
  1. ORTHO TRI CYCLEN [Suspect]
     Active Substance: ETHINYL ESTRADIOL\NORGESTIMATE
     Dosage: 1 DF, QD,  GESTATION WEEK 13.1-19.3
     Route: 064
     Dates: start: 20140820, end: 20141001
  2. RIBAVIRIN. [Suspect]
     Active Substance: RIBAVIRIN
     Dosage: UNK
     Route: 064
     Dates: end: 201405
  3. SOVALDI [Suspect]
     Active Substance: SOFOSBUVIR
     Dosage: UNK
     Route: 064
     Dates: end: 201405
  4. PEGASYS [Suspect]
     Active Substance: PEGINTERFERON ALFA-2A
     Dosage: UNK
     Route: 064
     Dates: end: 201405
  5. DEPO-PROVERA [Suspect]
     Active Substance: MEDROXYPROGESTERONE ACETATE
     Dosage: 150 MG, ONCE FOR 3 MONTHS, FROM GESTATION WEEK 3 -15
     Route: 064
     Dates: start: 20140609

REACTIONS (2)
  - Foetal exposure during pregnancy [Recovered/Resolved]
  - Plagiocephaly [Unknown]
